FAERS Safety Report 5688052-2 (Version None)
Quarter: 2008Q1

REPORT INFORMATION
  Report Type: 
  Country: None (occurrence: None)
  Receive Date: 20080327
  Receipt Date: 20080320
  Transmission Date: 20080703
  Serious: Yes (Hospitalization)
  Sender: FDA-Public Use
  Company Number: 2008-02000

PATIENT
  Age: 78 Year
  Sex: Female

DRUGS (1)
  1. FENTANYL [Suspect]
     Indication: PAIN
     Dosage: 1 PATCH, Q72H, TRANSDERMAL
     Route: 062
     Dates: start: 20080201

REACTIONS (4)
  - APPLICATION SITE DISCHARGE [None]
  - APPLICATION SITE IRRITATION [None]
  - DRUG INEFFECTIVE [None]
  - INFECTION [None]
